FAERS Safety Report 15490536 (Version 5)
Quarter: 2018Q4

REPORT INFORMATION
  Report Type: Report from Study
  Country: IN (occurrence: IN)
  Receive Date: 20181011
  Receipt Date: 20181119
  Transmission Date: 20190205
  Serious: Yes (Other)
  Sender: FDA-Public Use
  Company Number: PHHY2018IN063835

PATIENT
  Sex: Male

DRUGS (7)
  1. SCAPHO [Suspect]
     Active Substance: SECUKINUMAB
     Indication: ANKYLOSING SPONDYLITIS
     Dosage: 150 MG, QW FOR 5 WEEKS
     Route: 058
     Dates: start: 20180706
  2. SCAPHO [Suspect]
     Active Substance: SECUKINUMAB
     Dosage: 150 MG, UNK
     Route: 058
     Dates: start: 20180804
  3. SCAPHO [Suspect]
     Active Substance: SECUKINUMAB
     Dosage: UNK
     Route: 065
     Dates: start: 20180729
  4. SCAPHO [Suspect]
     Active Substance: SECUKINUMAB
     Dosage: 150 MG, UNK
     Route: 058
     Dates: start: 20081111
  5. SCAPHO [Suspect]
     Active Substance: SECUKINUMAB
     Indication: PSORIASIS
     Dosage: 150 MG, QW FOR 5 WEEKS
     Route: 058
     Dates: start: 20180715
  6. METHOTREXATE. [Suspect]
     Active Substance: METHOTREXATE
     Indication: PRODUCT USED FOR UNKNOWN INDICATION
     Route: 065
  7. SCAPHO [Suspect]
     Active Substance: SECUKINUMAB
     Dosage: 150 MG, QW FOR 5 WEEKS
     Route: 058
     Dates: start: 20180722

REACTIONS (9)
  - Eating disorder [Recovering/Resolving]
  - Thrombocytopenia [Not Recovered/Not Resolved]
  - Full blood count decreased [Not Recovered/Not Resolved]
  - Asthenia [Not Recovered/Not Resolved]
  - Nasopharyngitis [Not Recovered/Not Resolved]
  - Pain [Recovering/Resolving]
  - Pyrexia [Recovered/Resolved]
  - Vomiting [Not Recovered/Not Resolved]
  - Psoriasis [Unknown]
